FAERS Safety Report 14330869 (Version 1)
Quarter: 2017Q4

REPORT INFORMATION
  Report Type: Spontaneous
  Country: US (occurrence: US)
  Receive Date: 20171228
  Receipt Date: 20171228
  Transmission Date: 20180321
  Serious: No
  Sender: FDA-Public Use
  Company Number: US-SHIRE-US201732793

PATIENT
  Age: 68 Year
  Sex: Female

DRUGS (1)
  1. XIIDRA [Suspect]
     Active Substance: LIFITEGRAST
     Indication: PRODUCT USED FOR UNKNOWN INDICATION
     Dosage: UNK
     Route: 047
     Dates: start: 20171117

REACTIONS (3)
  - Vision blurred [Not Recovered/Not Resolved]
  - Instillation site pain [Not Recovered/Not Resolved]
  - Instillation site reaction [Not Recovered/Not Resolved]

NARRATIVE: CASE EVENT DATE: 20171117
